FAERS Safety Report 10908266 (Version 1)
Quarter: 2015Q1

REPORT INFORMATION
  Report Type: Spontaneous
  Country: US (occurrence: US)
  Receive Date: 20150312
  Receipt Date: 20150312
  Transmission Date: 20150721
  Serious: Yes (Hospitalization)
  Sender: FDA-Public Use
  Company Number: US-PFIZER INC-2015084075

PATIENT
  Age: 40 Year
  Sex: Male

DRUGS (2)
  1. DILANTIN [Suspect]
     Active Substance: PHENYTOIN
     Indication: SEIZURE
     Dosage: 300 MG, 2X/DAY (300 MG AM, 300 MG PM)
     Dates: start: 1978
  2. DEPAKOTE [Concomitant]
     Active Substance: DIVALPROEX SODIUM
     Dosage: UNK
     Dates: start: 1978

REACTIONS (1)
  - Back disorder [Recovering/Resolving]

NARRATIVE: CASE EVENT DATE: 1998
